FAERS Safety Report 9270021 (Version 2)
Quarter: 2014Q1

REPORT INFORMATION
  Report Type: Report from Study
  Country: CA (occurrence: CA)
  Receive Date: 20130503
  Receipt Date: 20140116
  Transmission Date: 20141002
  Serious: Yes (Other)
  Sender: FDA-Public Use
  Company Number: CA-ELI_LILLY_AND_COMPANY-CA201304007323

PATIENT
  Age: 66 Year
  Sex: Female

DRUGS (9)
  1. TERIPARATIDE [Suspect]
     Indication: OSTEOPOROSIS
     Dosage: 20 UG, QD
     Route: 058
     Dates: start: 20130308
  2. METHOTREXATE [Concomitant]
     Dosage: UNK, WEEKLY (1/W)
     Route: 065
  3. SYNTHROID [Concomitant]
     Dosage: UNK, UNKNOWN
     Route: 065
  4. VITAMIN D [Concomitant]
     Dosage: UNK, UNKNOWN
     Route: 065
  5. CARBOCAL [Concomitant]
     Dosage: UNK, UNKNOWN
     Route: 065
  6. HYDROXYCHLOROQUINE [Concomitant]
     Dosage: UNK, UNKNOWN
     Route: 065
  7. APO-FOLIC [Concomitant]
     Dosage: UNK, UNKNOWN
     Route: 065
  8. PANTOLOC                           /01263204/ [Concomitant]
     Dosage: UNK, UNKNOWN
     Route: 065
  9. B12 [Concomitant]
     Dosage: UNK, UNKNOWN
     Route: 065

REACTIONS (20)
  - Arrhythmia [Unknown]
  - White blood cell count decreased [Unknown]
  - Influenza like illness [Not Recovered/Not Resolved]
  - Hyperventilation [Not Recovered/Not Resolved]
  - Heart rate decreased [Not Recovered/Not Resolved]
  - Poor peripheral circulation [Not Recovered/Not Resolved]
  - Peripheral ischaemia [Not Recovered/Not Resolved]
  - Peripheral coldness [Not Recovered/Not Resolved]
  - Fatigue [Unknown]
  - Headache [Unknown]
  - Decreased appetite [Unknown]
  - Eye disorder [Unknown]
  - Chills [Unknown]
  - Hyperventilation [Unknown]
  - Dysstasia [Unknown]
  - Nausea [Unknown]
  - Hypoaesthesia [Not Recovered/Not Resolved]
  - Balance disorder [Not Recovered/Not Resolved]
  - Pollakiuria [Not Recovered/Not Resolved]
  - Thirst [Not Recovered/Not Resolved]
